FAERS Safety Report 15781327 (Version 1)
Quarter: 2019Q1

REPORT INFORMATION
  Report Type: Spontaneous
  Country: US (occurrence: US)
  Receive Date: 20190102
  Receipt Date: 20190102
  Transmission Date: 20190417
  Serious: No
  Sender: FDA-Public Use
  Company Number: US-SA-2018SA395793

PATIENT
  Sex: Female

DRUGS (1)
  1. PRALUENT [Suspect]
     Active Substance: ALIROCUMAB
     Dosage: UNK
     Route: 058
     Dates: start: 20181214

REACTIONS (7)
  - Oropharyngeal pain [Unknown]
  - Swelling face [Unknown]
  - Upper-airway cough syndrome [Unknown]
  - Secretion discharge [Unknown]
  - Eye swelling [Unknown]
  - Laryngitis [Unknown]
  - Throat irritation [Unknown]

NARRATIVE: CASE EVENT DATE: 20181215
